FAERS Safety Report 4725811-4 (Version None)
Quarter: 2005Q3

REPORT INFORMATION
  Report Type: 
  Country: None (occurrence: None)
  Receive Date: 20050722
  Receipt Date: 20050722
  Transmission Date: 20060218
  Serious: Yes (Hospitalization)
  Sender: FDA-Public Use
  Company Number: None

PATIENT
  Age: 35 Year
  Sex: Male

DRUGS (2)
  1. METHYLPREDNISOLONE [Suspect]
     Indication: NERVE BLOCK
     Dosage: PARENTERAL
     Route: 051
  2. LIDOCAINE [Suspect]
     Indication: NERVE BLOCK
     Dosage: PARENTERAL
     Route: 051

REACTIONS (1)
  - CHEST PAIN [None]
